FAERS Safety Report 6987472-3 (Version None)
Quarter: 2010Q3

REPORT INFORMATION
  Report Type: 
  Country: None (occurrence: None)
  Receive Date: 20100916
  Receipt Date: 20100913
  Transmission Date: 20110219
  Serious: Yes (Life-Threatening, Hospitalization, Other)
  Sender: FDA-Public Use
  Company Number: DE-BRISTOL-MYERS SQUIBB COMPANY-15258098

PATIENT
  Age: 69 Year
  Sex: Male
  Weight: 64 kg

DRUGS (3)
  1. CETUXIMAB [Suspect]
     Indication: HEAD AND NECK CANCER
     Dosage: RECENT INF ON 18AUG10;712.8MG 30JUN2010;445.5MG 07JUL2010
     Route: 042
     Dates: start: 20100630
  2. CISPLATIN FOR INJ [Suspect]
     Indication: HEAD AND NECK CANCER
     Dosage: RECENT INF ON 18AUG10;133.65MG 30JUN2010; 105.42MG 18AUG2010
     Route: 042
     Dates: start: 20100630
  3. DOCETAXEL [Suspect]
     Indication: HEAD AND NECK CANCER
     Dosage: RECENT INF ON 18AUG10;133.65MG 30JUN2010; 105.42MG 18AUG2010
     Route: 042
     Dates: start: 20100630

REACTIONS (1)
  - GASTROINTESTINAL HAEMORRHAGE [None]
